FAERS Safety Report 12786821 (Version 1)
Quarter: 2016Q3

REPORT INFORMATION
  Report Type: Spontaneous
  Country: US (occurrence: US)
  Receive Date: 20160928
  Receipt Date: 20160928
  Transmission Date: 20161109
  Serious: Yes (Other)
  Sender: FDA-Public Use
  Company Number: US-TEVA-662463USA

PATIENT
  Age: 27 Year
  Sex: Female

DRUGS (1)
  1. ZECUITY [Suspect]
     Active Substance: SUMATRIPTAN SUCCINATE
     Route: 062
     Dates: start: 20160406, end: 20160406

REACTIONS (10)
  - Application site burn [Recovered/Resolved]
  - Application site paraesthesia [Unknown]
  - Application site exfoliation [Recovered/Resolved]
  - Application site pruritus [Recovered/Resolved]
  - Application site warmth [Unknown]
  - Sunburn [Recovered/Resolved]
  - Application site pain [Recovered/Resolved]
  - Application site irritation [Unknown]
  - Application site discolouration [Recovered/Resolved]
  - Application site pain [Recovered/Resolved]

NARRATIVE: CASE EVENT DATE: 201604
